FAERS Safety Report 9272411 (Version 1)
Quarter: 2013Q2

REPORT INFORMATION
  Report Type: Spontaneous
  Country: US (occurrence: US)
  Receive Date: 20130506
  Receipt Date: 20130506
  Transmission Date: 20140414
  Serious: No
  Sender: FDA-Public Use
  Company Number: US-ASTRAZENECA-2012SE93403

PATIENT
  Age: 63 Year
  Sex: Female

DRUGS (2)
  1. PRILOSEC OTC [Suspect]
     Indication: PRODUCT USED FOR UNKNOWN INDICATION
     Route: 048
     Dates: start: 20121128, end: 20121128
  2. CARDIOVASCULAR SYSTEM DRUGS [Concomitant]
     Dosage: UNKNOWN

REACTIONS (3)
  - Gingival swelling [Recovered/Resolved]
  - Oedema mouth [Recovered/Resolved]
  - Intentional drug misuse [Unknown]
